FAERS Safety Report 8353013-1 (Version None)
Quarter: 2012Q2

REPORT INFORMATION
  Report Type: 
  Country: None (occurrence: None)
  Receive Date: 20120511
  Receipt Date: 20120509
  Transmission Date: 20120825
  Serious: Yes (Life-Threatening, Hospitalization)
  Sender: FDA-Public Use
  Company Number: DE-BRISTOL-MYERS SQUIBB COMPANY-16544074

PATIENT
  Age: 72 Year
  Sex: Female

DRUGS (5)
  1. SIMVASTATIN [Suspect]
  2. LEVOTHYROXINE SODIUM [Concomitant]
     Dosage: TABS
  3. BISOPROLOL FUMARATE [Concomitant]
     Dosage: TABS
  4. LEVEMIR [Suspect]
  5. ONGLYZA [Suspect]
     Indication: TYPE 2 DIABETES MELLITUS
     Dates: start: 20100901

REACTIONS (2)
  - METASTASES TO LIVER [None]
  - PANCREATIC CARCINOMA [None]
